FAERS Safety Report 6338493-5 (Version None)
Quarter: 2009Q3

REPORT INFORMATION
  Report Type: 
  Country: None (occurrence: None)
  Receive Date: 20090901
  Receipt Date: 20090817
  Transmission Date: 20100115
  Serious: Yes (Death)
  Sender: FDA-Public Use
  Company Number: 2009002132

PATIENT
  Age: 65 Year
  Sex: Female

DRUGS (12)
  1. ERLOTINIB HYDROCHLORIDE [Suspect]
     Indication: NON-SMALL CELL LUNG CANCER
     Dosage: 150 MG, QD, ORAL
     Route: 048
     Dates: start: 20090603, end: 20090618
  2. LOXONIN (LOXOPROFEN SODIUM) [Suspect]
  3. PLAVIX [Suspect]
     Dosage: 75 MG, QD
  4. PLETAL [Suspect]
     Dosage: 50 MG, QD
  5. BETAMETHASONE [Concomitant]
  6. HEAVY MAGNESIUM OXIDE [Concomitant]
  7. MUCOSTA (REBAMIPIDE) [Concomitant]
  8. OXYCONTIN [Concomitant]
  9. DILTIAZEM HYDROCHLORIDE [Concomitant]
  10. SIGMART (NICORANDIL) [Concomitant]
  11. ADALAT CC [Concomitant]
  12. LIVALO [Concomitant]

REACTIONS (7)
  - BLOOD GLUCOSE INCREASED [None]
  - DEPRESSED LEVEL OF CONSCIOUSNESS [None]
  - DIARRHOEA [None]
  - GASTROINTESTINAL ULCER HAEMORRHAGE [None]
  - GENERAL PHYSICAL HEALTH DETERIORATION [None]
  - SHOCK HAEMORRHAGIC [None]
  - URINE OUTPUT DECREASED [None]
